FAERS Safety Report 23888014 (Version 1)
Quarter: 2024Q2

REPORT INFORMATION
  Report Type: Spontaneous
  Country: JP (occurrence: JP)
  Receive Date: 20240523
  Receipt Date: 20240523
  Transmission Date: 20240717
  Serious: Yes (Other)
  Sender: FDA-Public Use
  Company Number: JP-ONO-2024JP010876

PATIENT

DRUGS (1)
  1. OPDIVO [Suspect]
     Active Substance: NIVOLUMAB
     Indication: Oesophageal carcinoma
     Dosage: 480 MG
     Route: 041
     Dates: start: 2021, end: 2021

REACTIONS (2)
  - Peritonitis [Recovering/Resolving]
  - Tuberculous pleurisy [Recovering/Resolving]

NARRATIVE: CASE EVENT DATE: 20210101
